FAERS Safety Report 9325074 (Version 1)
Quarter: 2013Q2

REPORT INFORMATION
  Report Type: Spontaneous
  Country: AU (occurrence: None)
  Receive Date: 20130530
  Receipt Date: 20130530
  Transmission Date: 20140414
  Serious: Yes (Hospitalization)
  Sender: FDA-Public Use
  Company Number: 2013AP005543

PATIENT
  Age: 99 Year
  Sex: Female

DRUGS (8)
  1. CLOPIDOGREL (CLOPIDOGREL) [Suspect]
     Dosage: 75 MG; TAB; UNK; QD
  2. METOPROLOL [Suspect]
  3. TEMAZEPAM (TEMAZEPAM) [Suspect]
     Dosage: 10 MG; TAB; UNK; QD
     Dates: start: 20120416, end: 20120418
  4. ALENDRONATE SODIUM (ALENDRONATE SODIUM) (ALENDRONATE SODIUM) [Concomitant]
  5. CALCIUM (CALCIUM) [Concomitant]
  6. FRUSEMIDE?/00032601/ (FUROSEMIDE) [Concomitant]
  7. RANITIDINE (RANITIDINE) [Concomitant]
  8. SPIRONOLACTONE (SPIRONOLACTONE) [Concomitant]

REACTIONS (4)
  - Femur fracture [None]
  - Fall [None]
  - Laceration [None]
  - Contusion [None]
